FAERS Safety Report 9637955 (Version 1)
Quarter: 2013Q4

REPORT INFORMATION
  Report Type: Spontaneous
  Country: US (occurrence: US)
  Receive Date: 20131022
  Receipt Date: 20131022
  Transmission Date: 20140711
  Serious: Yes (Hospitalization, Other)
  Sender: FDA-Public Use
  Company Number: US-ELI_LILLY_AND_COMPANY-US201310004401

PATIENT
  Age: 39 Year
  Sex: Female
  Weight: 79.37 kg

DRUGS (2)
  1. HUMALOG LISPRO [Suspect]
     Indication: PRODUCT USED FOR UNKNOWN INDICATION
     Dosage: UNK
     Route: 058
     Dates: end: 20131006
  2. HUMALOG LISPRO [Suspect]
     Dosage: UNK
     Route: 058
     Dates: start: 20131008

REACTIONS (2)
  - Diabetic ketoacidosis [Unknown]
  - Blood glucose decreased [Unknown]
